FAERS Safety Report 24627653 (Version 1)
Quarter: 2024Q4

REPORT INFORMATION
  Report Type: Spontaneous
  Country: FR (occurrence: FR)
  Receive Date: 20241116
  Receipt Date: 20241116
  Transmission Date: 20250115
  Serious: Yes (Hospitalization, Other)
  Sender: ALEXION PHARMACEUTICALS
  Company Number: None

PATIENT
  Age: 81 Year
  Weight: 74 kg

DRUGS (52)
  1. DURVALUMAB [Suspect]
     Active Substance: DURVALUMAB
     Indication: Hepatocellular carcinoma
  2. DURVALUMAB [Suspect]
     Active Substance: DURVALUMAB
  3. DURVALUMAB [Suspect]
     Active Substance: DURVALUMAB
  4. DURVALUMAB [Suspect]
     Active Substance: DURVALUMAB
  5. ACECLOFENAC [Suspect]
     Active Substance: ACECLOFENAC
     Indication: Pain
  6. ACECLOFENAC [Suspect]
     Active Substance: ACECLOFENAC
  7. ACECLOFENAC [Suspect]
     Active Substance: ACECLOFENAC
  8. ACECLOFENAC [Suspect]
     Active Substance: ACECLOFENAC
  9. PANTOPRAZOLE [Suspect]
     Active Substance: PANTOPRAZOLE
  10. PANTOPRAZOLE [Suspect]
     Active Substance: PANTOPRAZOLE
  11. TREMELIMUMAB [Concomitant]
     Active Substance: TREMELIMUMAB
     Indication: Hepatocellular carcinoma
  12. TREMELIMUMAB [Concomitant]
     Active Substance: TREMELIMUMAB
  13. KARDEGIC [Concomitant]
     Active Substance: ASPIRIN DL-LYSINE
     Route: 065
  14. KARDEGIC [Concomitant]
     Active Substance: ASPIRIN DL-LYSINE
  15. KARDEGIC [Concomitant]
     Active Substance: ASPIRIN DL-LYSINE
     Route: 065
  16. KARDEGIC [Concomitant]
     Active Substance: ASPIRIN DL-LYSINE
  17. APIXABAN [Concomitant]
     Active Substance: APIXABAN
     Route: 065
  18. APIXABAN [Concomitant]
     Active Substance: APIXABAN
  19. APIXABAN [Concomitant]
     Active Substance: APIXABAN
     Route: 065
  20. APIXABAN [Concomitant]
     Active Substance: APIXABAN
  21. AMIODARONE [Concomitant]
     Active Substance: AMIODARONE
     Route: 065
  22. AMIODARONE [Concomitant]
     Active Substance: AMIODARONE
  23. AMIODARONE [Concomitant]
     Active Substance: AMIODARONE
     Route: 065
  24. AMIODARONE [Concomitant]
     Active Substance: AMIODARONE
  25. RAMIPRIL [Concomitant]
     Active Substance: RAMIPRIL
     Route: 065
  26. RAMIPRIL [Concomitant]
     Active Substance: RAMIPRIL
  27. RAMIPRIL [Concomitant]
     Active Substance: RAMIPRIL
     Route: 065
  28. RAMIPRIL [Concomitant]
     Active Substance: RAMIPRIL
  29. FUROSEMIDE [Concomitant]
     Active Substance: FUROSEMIDE
     Route: 065
  30. FUROSEMIDE [Concomitant]
     Active Substance: FUROSEMIDE
  31. FUROSEMIDE [Concomitant]
     Active Substance: FUROSEMIDE
     Route: 065
  32. FUROSEMIDE [Concomitant]
     Active Substance: FUROSEMIDE
  33. ATORVASTATIN [Concomitant]
     Active Substance: ATORVASTATIN
  34. ATORVASTATIN [Concomitant]
     Active Substance: ATORVASTATIN
     Route: 065
  35. LEVOTHYROXINE SODIUM [Concomitant]
     Active Substance: LEVOTHYROXINE SODIUM
  36. LEVOTHYROXINE SODIUM [Concomitant]
     Active Substance: LEVOTHYROXINE SODIUM
     Route: 065
  37. TRAMADOL HYDROCHLORIDE [Concomitant]
     Active Substance: TRAMADOL HYDROCHLORIDE
  38. TRAMADOL HYDROCHLORIDE [Concomitant]
     Active Substance: TRAMADOL HYDROCHLORIDE
     Route: 065
  39. SINEMET [Concomitant]
     Active Substance: CARBIDOPA\LEVODOPA
     Route: 065
  40. SINEMET [Concomitant]
     Active Substance: CARBIDOPA\LEVODOPA
  41. SINEMET [Concomitant]
     Active Substance: CARBIDOPA\LEVODOPA
     Route: 065
  42. SINEMET [Concomitant]
     Active Substance: CARBIDOPA\LEVODOPA
  43. LYRICA [Concomitant]
     Active Substance: PREGABALIN
  44. LYRICA [Concomitant]
     Active Substance: PREGABALIN
     Route: 065
  45. RIVOTRIL [Concomitant]
     Active Substance: CLONAZEPAM
  46. RIVOTRIL [Concomitant]
     Active Substance: CLONAZEPAM
     Route: 065
  47. ROPINIROLE HYDROCHLORIDE [Concomitant]
     Active Substance: ROPINIROLE HYDROCHLORIDE
  48. ROPINIROLE HYDROCHLORIDE [Concomitant]
     Active Substance: ROPINIROLE HYDROCHLORIDE
     Route: 065
  49. BENSERAZIDE HYDROCHLORIDE\LEVODOPA [Concomitant]
     Active Substance: BENSERAZIDE HYDROCHLORIDE\LEVODOPA
  50. BENSERAZIDE HYDROCHLORIDE\LEVODOPA [Concomitant]
     Active Substance: BENSERAZIDE HYDROCHLORIDE\LEVODOPA
     Route: 065
  51. MOVICOL [Concomitant]
     Active Substance: POLYETHYLENE GLYCOL 3350\POTASSIUM CHLORIDE\SODIUM BICARBONATE\SODIUM CHLORIDE
  52. MOVICOL [Concomitant]
     Active Substance: POLYETHYLENE GLYCOL 3350\POTASSIUM CHLORIDE\SODIUM BICARBONATE\SODIUM CHLORIDE
     Route: 065

REACTIONS (1)
  - Clostridium difficile colitis [Recovered/Resolved with Sequelae]
